FAERS Safety Report 7228879-9 (Version None)
Quarter: 2011Q1

REPORT INFORMATION
  Report Type: 
  Country: None (occurrence: None)
  Receive Date: 20110117
  Receipt Date: 20101118
  Transmission Date: 20110831
  Serious: Yes (Hospitalization)
  Sender: FDA-Public Use
  Company Number: US-BAYER-201033352NA

PATIENT
  Sex: Female
  Weight: 58.957 kg

DRUGS (7)
  1. YASMIN [Suspect]
     Indication: MENSTRUAL CYCLE MANAGEMENT
     Dosage: UNK UNK, UNK
     Route: 065
     Dates: start: 20010101, end: 20010101
  2. YASMIN [Suspect]
     Indication: DYSMENORRHOEA
  3. NORMAL SALINE [Concomitant]
     Dosage: 1 UNK, UNK
     Dates: start: 20030531
  4. TORADOL [Concomitant]
     Indication: PAIN
     Dosage: 30 MG, UNK
     Dates: start: 20030531
  5. ALBUTEROL [Concomitant]
     Indication: ASTHMA
  6. DEPO-PROVERA [Concomitant]
     Indication: CONTRACEPTION
     Dosage: UNK
     Dates: start: 20030101
  7. COMPAZINE [Concomitant]
     Indication: GALLBLADDER DISORDER
     Dosage: UNK
     Dates: start: 20030101

REACTIONS (5)
  - MOOD SWINGS [None]
  - CHOLECYSTITIS [None]
  - CHOLELITHIASIS [None]
  - GALLBLADDER CHOLESTEROLOSIS [None]
  - WEIGHT INCREASED [None]
